FAERS Safety Report 8794770 (Version 1)
Quarter: 2012Q4

REPORT INFORMATION
  Report Type: 
  Country: US (occurrence: US)
  Receive Date: 20120917
  Receipt Date: 20120917
  Transmission Date: 20130627
  Serious: Yes (Other)
  Sender: FDA-Public Use
  Company Number: PHEH2012US017713

PATIENT
  Sex: Female

DRUGS (2)
  1. DIOVAN [Suspect]
     Dosage: 1 DF, per day (160/25)
  2. LEVOTHYROXINE [Concomitant]
     Dosage: 1 DF, per day

REACTIONS (3)
  - Thyroid disorder [Unknown]
  - Osteopenia [Unknown]
  - Musculoskeletal stiffness [Unknown]
